FAERS Safety Report 7945492-6 (Version None)
Quarter: 2011Q4

REPORT INFORMATION
  Report Type: 
  Country: None (occurrence: None)
  Receive Date: 20111125
  Receipt Date: 20111108
  Transmission Date: 20120403
  Serious: Yes (Other)
  Sender: FDA-Public Use
  Company Number: FK201102652

PATIENT
  Age: 8 Year
  Sex: Female

DRUGS (1)
  1. IFOSFAMIDE [Suspect]
     Indication: EWING'S SARCOMA

REACTIONS (2)
  - NEPHROPATHY [None]
  - RENAL IMPAIRMENT [None]
